FAERS Safety Report 5154171-2 (Version None)
Quarter: 2006Q4

REPORT INFORMATION
  Report Type: 
  Country: None (occurrence: None)
  Receive Date: 20061116
  Receipt Date: 20061116
  Transmission Date: 20070319
  Serious: Yes (Other)
  Sender: FDA-Public Use
  Company Number: None

PATIENT
  Age: 50 Year
  Sex: Female
  Weight: 68.0396 kg

DRUGS (5)
  1. REVLIMID [Suspect]
     Indication: MULTIPLE MYELOMA
     Dosage: 25MG DAILY PO
     Route: 048
     Dates: start: 20060901, end: 20061024
  2. PRILOSEC [Concomitant]
  3. PROCRIT [Concomitant]
  4. COMPAZINE [Concomitant]
  5. VICODIN [Concomitant]

REACTIONS (3)
  - FEBRILE NEUTROPENIA [None]
  - PANCYTOPENIA [None]
  - RENAL DISORDER [None]
